FAERS Safety Report 4533746-5 (Version None)
Quarter: 2004Q4

REPORT INFORMATION
  Report Type: 
  Country: None (occurrence: None)
  Receive Date: 20041221
  Receipt Date: 20041214
  Transmission Date: 20050328
  Serious: Yes (Other)
  Sender: FDA-Public Use
  Company Number: PHBS2004US16868

PATIENT
  Age: 42 Year
  Sex: Female

DRUGS (3)
  1. CLOZAPINE [Suspect]
     Indication: PSYCHOTIC DISORDER
  2. DIVALPROEX SODIUM [Suspect]
  3. LITHIUM [Concomitant]

REACTIONS (5)
  - DRUG HYPERSENSITIVITY [None]
  - GRANULOCYTOPENIA [None]
  - INFECTION [None]
  - LEUKOPENIA [None]
  - PSYCHOTIC DISORDER [None]
